FAERS Safety Report 18153956 (Version 4)
Quarter: 2020Q4

REPORT INFORMATION
  Report Type: Report from Study
  Country: US (occurrence: US)
  Receive Date: 20200816
  Receipt Date: 20201111
  Transmission Date: 20210113
  Serious: No
  Sender: FDA-Public Use
  Company Number: NVSC2020US224417

PATIENT
  Age: 60 Year
  Sex: Female

DRUGS (3)
  1. COSENTYX [Suspect]
     Active Substance: SECUKINUMAB
     Indication: PSORIASIS
  2. COSENTYX [Suspect]
     Active Substance: SECUKINUMAB
     Indication: PSORIASIS
  3. COSENTYX [Suspect]
     Active Substance: SECUKINUMAB
     Indication: PSORIATIC ARTHROPATHY
     Dosage: INJECT 2 PENS (300 MG, Q4W)
     Route: 058

REACTIONS (4)
  - Erythema [Unknown]
  - Seasonal allergy [Unknown]
  - Skin irritation [Unknown]
  - Inappropriate schedule of product administration [Unknown]
